FAERS Safety Report 9664007 (Version 1)
Quarter: 2013Q4

REPORT INFORMATION
  Report Type: Spontaneous
  Country: US (occurrence: None)
  Receive Date: 20131030
  Receipt Date: 20131030
  Transmission Date: 20140711
  Serious: Yes (Other)
  Sender: FDA-Public Use
  Company Number: None

PATIENT
  Age: 28 Year
  Sex: Female
  Weight: 76.2 kg

DRUGS (1)
  1. MIRENA [Suspect]

REACTIONS (7)
  - Panic attack [None]
  - Anxiety [None]
  - Mood altered [None]
  - Fatigue [None]
  - Infertility [None]
  - Feeling abnormal [None]
  - Apparent death [None]
